FAERS Safety Report 7708019-X (Version None)
Quarter: 2011Q3

REPORT INFORMATION
  Report Type: 
  Country: None (occurrence: None)
  Receive Date: 20110824
  Receipt Date: 20110811
  Transmission Date: 20111222
  Serious: Yes (Hospitalization, Other)
  Sender: FDA-Public Use
  Company Number: DE-MYLANLABS-2011S1016706

PATIENT
  Sex: Male
  Weight: 3.6 kg

DRUGS (1)
  1. LAMOTRIGINE [Suspect]
     Dosage: 300 [MG/D (2X150) ]
     Route: 064

REACTIONS (5)
  - MATERNAL EXPOSURE DURING PREGNANCY [None]
  - TEMPERATURE REGULATION DISORDER [None]
  - NEONATAL RESPIRATORY DISTRESS SYNDROME [None]
  - FEEDING DISORDER NEONATAL [None]
  - BRADYCARDIA NEONATAL [None]
